FAERS Safety Report 5066235-2 (Version None)
Quarter: 2006Q3

REPORT INFORMATION
  Report Type: 
  Country: None (occurrence: None)
  Receive Date: 20060727
  Receipt Date: 20060720
  Transmission Date: 20061208
  Serious: Yes (Hospitalization)
  Sender: FDA-Public Use
  Company Number: 2006BI008931

PATIENT
  Age: 58 Year
  Sex: Female
  Weight: 61.2356 kg

DRUGS (2)
  1. AVONEX [Suspect]
     Indication: MULTIPLE SCLEROSIS
     Dosage: 30 UG;QW;IM
     Route: 030
     Dates: start: 19970101, end: 20010101
  2. AVONEX [Suspect]
     Indication: MULTIPLE SCLEROSIS
     Dosage: 30 UG;QW;IM
     Route: 030
     Dates: start: 20050401

REACTIONS (6)
  - BLINDNESS UNILATERAL [None]
  - CYSTITIS PSEUDOMONAL [None]
  - DISEASE RECURRENCE [None]
  - MOTOR DYSFUNCTION [None]
  - URINARY RETENTION [None]
  - URINARY TRACT INFECTION PSEUDOMONAL [None]
